FAERS Safety Report 24015024 (Version 1)
Quarter: 2024Q2

REPORT INFORMATION
  Report Type: Spontaneous
  Country: US (occurrence: US)
  Receive Date: 20240626
  Receipt Date: 20240626
  Transmission Date: 20240716
  Serious: Yes (Other)
  Sender: FDA-Public Use
  Company Number: US-PFIZER INC-PV202400057217

PATIENT
  Age: 76 Year
  Sex: Male
  Weight: 101.13 kg

DRUGS (24)
  1. BINIMETINIB [Suspect]
     Active Substance: BINIMETINIB
     Indication: Metastatic malignant melanoma
     Dosage: UNK
     Dates: start: 202008, end: 202012
  2. BRAFTOVI [Suspect]
     Active Substance: ENCORAFENIB
     Indication: Metastatic malignant melanoma
     Dosage: TAKE 450 MG BY MOUTH ONCE PER DAY.
     Route: 048
     Dates: start: 202008, end: 202012
  3. BRAFTOVI [Suspect]
     Active Substance: ENCORAFENIB
     Dosage: UNK
     Dates: start: 202102
  4. HUMALOG [Concomitant]
     Active Substance: INSULIN LISPRO
     Dosage: (USE 7 UNITS BEFORE EACH MEAL)
     Route: 058
  5. LORAZEPAM [Concomitant]
     Active Substance: LORAZEPAM
     Dosage: TAKE 1 TABLET BY MOUTH AS DIRECTED
     Route: 048
  6. NORCO [Concomitant]
     Active Substance: ACETAMINOPHEN\HYDROCODONE BITARTRATE
     Indication: Pain
     Dosage: TAKE 1 TABLET BY MOUTH EVERY 6HOURS AS NEEDED
     Route: 048
  7. JANUMET [Concomitant]
     Active Substance: METFORMIN HYDROCHLORIDE\SITAGLIPTIN PHOSPHATE
     Dosage: TAKE 1 TABLET BY MOUTH TWO TIMES PER DAY WITH MEALS
     Route: 048
  8. LOPID [Concomitant]
     Active Substance: GEMFIBROZIL
     Dosage: TAKE 1 TABLET BY MOUTH TWO TIMES PER DAY BEFORE MEALS
     Route: 048
  9. CELEBREX [Concomitant]
     Active Substance: CELECOXIB
     Indication: Pain in extremity
     Dosage: 1 CAPSULE TWICE DAILY AS NEEDED. TAKE WITH FOOD
     Route: 048
  10. CELEBREX [Concomitant]
     Active Substance: CELECOXIB
     Indication: Back pain
  11. DILAUDID [Concomitant]
     Active Substance: HYDROMORPHONE HYDROCHLORIDE
     Dosage: TAE 1 TAB BY MOUTH EVERY 8HOURS AS NEEDED.
     Route: 048
  12. NALOXONE HCL [Concomitant]
     Active Substance: NALOXONE HYDROCHLORIDE
     Indication: Drug use disorder
     Dosage: 1 SPRAY AS NEEDED FOR OPIOID REVERSAL)
     Route: 045
  13. NOVOLOG [Concomitant]
     Active Substance: INSULIN ASPART
     Dosage: INJECT SUBCUTANEOUS AS DIRECTED. INJECT 3 UNITS WITH EACH MEAL + SLIDING SCALE
     Route: 058
  14. PRAMIPEXOLE [Concomitant]
     Active Substance: PRAMIPEXOLE\PRAMIPEXOLE DIHYDROCHLORIDE
     Dosage: TAKE 5 TABS BY MOUTH EVERY NIGHT AT BEDTIME.
     Route: 048
  15. LIDOCAINE [Concomitant]
     Active Substance: LIDOCAINE
     Dosage: PLACE 1 APPLICATION TOPICALLY ONCE DAILY AS NEEDED. APPLY TO BOTH FEET.
     Route: 061
  16. NEURONTIN [Concomitant]
     Active Substance: GABAPENTIN
     Dosage: TAKE 4 CAPS BY MOUTH EVERY NIGHT AT BEDTIME.
     Route: 048
  17. LEVETIRACETAM [Concomitant]
     Active Substance: LEVETIRACETAM
     Dosage: TAKE 1 TAB BY MOUTH TWO TIMES PER DAY.
     Route: 048
  18. GLUCOTROL [Concomitant]
     Active Substance: GLIPIZIDE
     Dosage: TAKE 1 TAB BY MOUTH ONCE PER DAY
     Route: 048
  19. LANTUS [Concomitant]
     Active Substance: INSULIN GLARGINE
     Dosage: INJECT 45 UNITS SUBCUTANEOUS EVERY NIGHT AT BEDTIME
     Route: 058
  20. FERROUS SULFATE [Concomitant]
     Active Substance: FERROUS SULFATE
     Dosage: TAKE 1 TAB BY MOUTH ONCE PER DAY
     Route: 048
  21. SENOKOT-S [Concomitant]
     Active Substance: DOCUSATE SODIUM\SENNOSIDES
     Indication: Constipation
     Dosage: TAKE 1 TAB BY MOUTH ONCE DAILY AS NEEDED.
     Route: 048
  22. OMEPRAZOLE [Concomitant]
     Active Substance: DONEPEZIL HYDROCHLORIDE\OMEPRAZOLE\OMEPRAZOLE MAGNESIUM
     Dosage: TAKE 1 CAP BY MOUTH ONCE PER DAY
     Route: 048
  23. D3 5000 [Concomitant]
     Dosage: TAKE 1 CAP BY MOUTH ONCE PER DAY
     Route: 048
  24. COZAAR [Concomitant]
     Active Substance: LOSARTAN POTASSIUM
     Dosage: TAKE 1 CAP BY MOUTH ONCE PER DAY
     Route: 048

REACTIONS (13)
  - Colitis [Unknown]
  - Large intestinal ulcer [Unknown]
  - Blood loss anaemia [Not Recovered/Not Resolved]
  - Iron deficiency anaemia [Unknown]
  - Enteritis [Unknown]
  - Weight decreased [Unknown]
  - Restless legs syndrome [Unknown]
  - Gastrointestinal wall thickening [Unknown]
  - Lymphadenopathy [Unknown]
  - Oedema peripheral [Recovering/Resolving]
  - Arthralgia [Recovering/Resolving]
  - Neoplasm progression [Unknown]
  - Off label use [Unknown]

NARRATIVE: CASE EVENT DATE: 20200101
